FAERS Safety Report 5951428-X (Version None)
Quarter: 2008Q4

REPORT INFORMATION
  Report Type: 
  Country: None (occurrence: None)
  Receive Date: 20081111
  Receipt Date: 20081111
  Transmission Date: 20090506
  Serious: Yes (Life-Threatening, Hospitalization, Other)
  Sender: FDA-Public Use
  Company Number: None

PATIENT
  Age: 82 Year
  Sex: Female
  Weight: 58.9676 kg

DRUGS (1)
  1. DIGITEK [Suspect]
     Indication: ATRIAL FIBRILLATION
     Dosage: 1X A DAY
     Dates: start: 20071101, end: 20080801

REACTIONS (5)
  - CARDIAC FAILURE CONGESTIVE [None]
  - FALL [None]
  - HYPOTENSION [None]
  - LOSS OF CONSCIOUSNESS [None]
  - OEDEMA PERIPHERAL [None]
